FAERS Safety Report 24426024 (Version 1)
Quarter: 2024Q4

REPORT INFORMATION
  Report Type: Spontaneous
  Country: RU (occurrence: RU)
  Receive Date: 20241011
  Receipt Date: 20241011
  Transmission Date: 20250115
  Serious: Yes (Other)
  Sender: ORGANON
  Company Number: RU-ORGANON-O2410RUS000742

PATIENT
  Sex: Female

DRUGS (1)
  1. NUVARING [Suspect]
     Active Substance: ETHINYL ESTRADIOL\ETONOGESTREL
     Dosage: 1 RING FOR 3 MONTHS
     Route: 067

REACTIONS (3)
  - Pregnancy with contraceptive device [Unknown]
  - Unintended pregnancy [Unknown]
  - Incorrect product administration duration [Unknown]
